FAERS Safety Report 22662020 (Version 2)
Quarter: 2023Q2

REPORT INFORMATION
  Report Type: Spontaneous
  Country: US (occurrence: US)
  Receive Date: 20230630
  Receipt Date: 20230630
  Transmission Date: 20230722
  Serious: Yes (Other)
  Sender: FDA-Public Use
  Company Number: US-GILEAD-2023-0634285

PATIENT
  Sex: Female

DRUGS (2)
  1. VEMLIDY [Suspect]
     Active Substance: TENOFOVIR ALAFENAMIDE FUMARATE
     Indication: Product used for unknown indication
     Dosage: 25 MG, QD
     Route: 065
  2. PEGINTRON [Concomitant]
     Active Substance: PEGINTERFERON ALFA-2B

REACTIONS (2)
  - Hepatitis D [Not Recovered/Not Resolved]
  - Treatment failure [Unknown]
